FAERS Safety Report 25089496 (Version 1)
Quarter: 2025Q1

REPORT INFORMATION
  Report Type: Spontaneous
  Country: US (occurrence: None)
  Receive Date: 20250317
  Receipt Date: 20250317
  Transmission Date: 20250409
  Serious: Yes (Death, Hospitalization, Other)
  Sender: FDA-CTU
  Company Number: None

PATIENT
  Age: 70 Year
  Sex: Female

DRUGS (2)
  1. CEFTRIAXONE [Suspect]
     Active Substance: CEFTRIAXONE
     Indication: Pneumonia
     Dates: start: 20250124, end: 20250125
  2. CEFTRIAXONE [Suspect]
     Active Substance: CEFTRIAXONE
     Indication: Pneumonia
     Dates: start: 20250124, end: 20250125

REACTIONS (7)
  - Respiratory arrest [None]
  - Pulseless electrical activity [None]
  - Catheter site haemorrhage [None]
  - Multiple organ dysfunction syndrome [None]
  - Iatrogenic injury [None]
  - Cardiac procedure complication [None]
  - Myocardial injury [None]

NARRATIVE: CASE EVENT DATE: 20250124
